FAERS Safety Report 11026492 (Version 1)
Quarter: 2015Q2

REPORT INFORMATION
  Report Type: Spontaneous
  Country: US (occurrence: US)
  Receive Date: 20150414
  Receipt Date: 20150414
  Transmission Date: 20150821
  Serious: Yes (Other)
  Sender: FDA-Public Use
  Company Number: US-BAYER-2015-114603

PATIENT
  Age: 54 Year
  Sex: Female

DRUGS (3)
  1. CLIMARA [Suspect]
     Active Substance: ESTRADIOL
     Dosage: 50 MCG/24HR, UNK
     Dates: start: 201309
  2. CLIMARA [Suspect]
     Active Substance: ESTRADIOL
     Dosage: 25 MCG/24HR, UNK
     Dates: start: 201412, end: 201503
  3. CLIMARA [Suspect]
     Active Substance: ESTRADIOL
     Dosage: 75 MCG/24HR, UNK

REACTIONS (4)
  - Drug ineffective [None]
  - Adverse event [None]
  - Uterine polyp [None]
  - Drug administration error [None]
